FAERS Safety Report 4359718-1 (Version None)
Quarter: 2004Q2

REPORT INFORMATION
  Report Type: 
  Country: None (occurrence: None)
  Receive Date: 20040512
  Receipt Date: 20040428
  Transmission Date: 20050107
  Serious: Yes (Other)
  Sender: FDA-Public Use
  Company Number: GBS031013799

PATIENT
  Age: 55 Year
  Sex: Male

DRUGS (6)
  1. CIALIS [Suspect]
     Indication: ERECTILE DYSFUNCTION
     Dosage: 20 MG/AS NEEDED
     Dates: start: 20030813, end: 20030922
  2. NU-SEALS ASPIRIN (ACETYLSALICYCLIC ACID) [Concomitant]
  3. RAMIPRIL [Concomitant]
  4. SERETIDE [Concomitant]
  5. VENTOLIN [Concomitant]
  6. CARDURA [Concomitant]

REACTIONS (1)
  - HAEMATOSPERMIA [None]
